FAERS Safety Report 5146639-X (Version None)
Quarter: 2006Q4

REPORT INFORMATION
  Report Type: 
  Country: None (occurrence: None)
  Receive Date: 20061109
  Receipt Date: 20050214
  Transmission Date: 20070319
  Serious: Yes (Disabling, Other)
  Sender: FDA-Public Use
  Company Number: GB-BRISTOL-MYERS SQUIBB COMPANY-12866216

PATIENT
  Age: 40 Year
  Sex: Female

DRUGS (9)
  1. SUSTIVA [Suspect]
     Indication: HIV INFECTION
     Dosage: 600 MG 7/5/04 TO 8/31/04; 800 MG 8/31/04 TO 11/19/04; 600 MG 11/19/04 TO 12/14/04.
     Route: 048
     Dates: start: 20040705, end: 20041214
  2. LAMIVUDINE [Concomitant]
     Indication: HIV INFECTION
     Route: 048
     Dates: start: 20040705
  3. TENOFOVIR [Concomitant]
     Indication: HIV INFECTION
     Route: 048
     Dates: start: 20040705
  4. ETHAMBUTOL HYDROCHLORIDE [Concomitant]
     Indication: PULMONARY TUBERCULOSIS
     Route: 048
     Dates: start: 20040831
  5. ETHAMBUTOL HYDROCHLORIDE [Concomitant]
     Route: 048
     Dates: start: 20040831
  6. ISONIAZID [Concomitant]
     Indication: PULMONARY TUBERCULOSIS
     Route: 048
     Dates: start: 20040831, end: 20050201
  7. VITAMIN B6 [Concomitant]
     Indication: PULMONARY TUBERCULOSIS
     Route: 048
     Dates: start: 20040831
  8. PYRAZINAMIDE [Concomitant]
     Indication: PULMONARY TUBERCULOSIS
     Route: 048
     Dates: start: 20040831, end: 20041101
  9. RIFAMPICIN [Concomitant]
     Indication: TUBERCULOSIS

REACTIONS (6)
  - BALANCE DISORDER [None]
  - CEREBELLAR SYNDROME [None]
  - CONFUSIONAL STATE [None]
  - DISABILITY [None]
  - DRUG HALF-LIFE INCREASED [None]
  - DRUG LEVEL INCREASED [None]
